FAERS Safety Report 24118569 (Version 1)
Quarter: 2024Q3

REPORT INFORMATION
  Report Type: Spontaneous
  Country: CO (occurrence: CO)
  Receive Date: 20240722
  Receipt Date: 20240722
  Transmission Date: 20241016
  Serious: Yes (Death, Life-Threatening, Hospitalization, Other)
  Sender: AUROBINDO
  Company Number: CO-MLMSERVICE-20240705-PI124403-00059-1

PATIENT
  Age: 28 Year
  Sex: Female

DRUGS (5)
  1. METHYLPREDNISOLONE [Suspect]
     Active Substance: METHYLPREDNISOLONE
     Indication: Autoimmune haemolytic anaemia
     Dosage: UNK, HIGH-DOSE
     Route: 042
  2. AZATHIOPRINE [Suspect]
     Active Substance: AZATHIOPRINE
     Indication: Autoimmune haemolytic anaemia
     Dosage: 50 MILLIGRAM, ONCE A DAY
     Route: 048
  3. CYCLOPHOSPHAMIDE [Suspect]
     Active Substance: CYCLOPHOSPHAMIDE
     Indication: Autoimmune haemolytic anaemia
     Dosage: 3 DOSAGE FORM
     Route: 065
  4. PREDNISOLONE [Suspect]
     Active Substance: PREDNISOLONE
     Indication: Autoimmune haemolytic anaemia
     Dosage: 25 MILLIGRAM, ONCE A DAY
     Route: 048
  5. RITUXIMAB [Suspect]
     Active Substance: RITUXIMAB
     Indication: Autoimmune haemolytic anaemia
     Dosage: 4 DOSAGE FORM, 1 TOTAL
     Route: 065

REACTIONS (20)
  - Escherichia bacteraemia [Fatal]
  - Enterococcal bacteraemia [Fatal]
  - Pancytopenia [Fatal]
  - Cytomegalovirus viraemia [Fatal]
  - Klebsiella bacteraemia [Fatal]
  - Kidney infection [Fatal]
  - Acute respiratory failure [Fatal]
  - Bronchopulmonary aspergillosis [Fatal]
  - Pulmonary tuberculosis [Fatal]
  - Myelosuppression [Fatal]
  - Bone marrow failure [Fatal]
  - Herpes simplex viraemia [Fatal]
  - Staphylococcal bacteraemia [Fatal]
  - Systemic candida [Fatal]
  - Osteomyelitis fungal [Fatal]
  - Stomatitis [Fatal]
  - Kidney enlargement [Fatal]
  - Haemodynamic instability [Fatal]
  - Vulvovaginal inflammation [Fatal]
  - Drug ineffective [Fatal]
